FAERS Safety Report 6202116-6 (Version None)
Quarter: 2009Q2

REPORT INFORMATION
  Report Type: 
  Country: None (occurrence: None)
  Receive Date: 20090526
  Receipt Date: 20090522
  Transmission Date: 20091009
  Serious: Yes (Other)
  Sender: FDA-Public Use
  Company Number: CN-BAYER-200920600GPV

PATIENT
  Age: 65 Year
  Sex: Male

DRUGS (2)
  1. NEXAVAR [Suspect]
     Indication: LUNG ADENOCARCINOMA
     Dosage: TOTAL DAILY DOSE: 400 MG
     Route: 048
     Dates: start: 20090401, end: 20090501
  2. IRESSA [Concomitant]
     Indication: LUNG ADENOCARCINOMA
     Dosage: TOTAL DAILY DOSE: 250 MG
     Route: 048
     Dates: start: 20090101

REACTIONS (3)
  - CEREBRAL INFARCTION [None]
  - SOMNOLENCE [None]
  - TYPHOID FEVER [None]
